FAERS Safety Report 10956715 (Version 1)
Quarter: 2015Q1

REPORT INFORMATION
  Report Type: Spontaneous
  Country: US (occurrence: US)
  Receive Date: 20150326
  Receipt Date: 20150326
  Transmission Date: 20150721
  Serious: No
  Sender: FDA-Public Use
  Company Number: US-MYLANLABS-2014S1006701

PATIENT
  Age: 69 Year
  Sex: Female
  Weight: 124.29 kg

DRUGS (3)
  1. EMSAM [Suspect]
     Active Substance: SELEGILINE
     Indication: OFF LABEL USE
  2. EMSAM [Suspect]
     Active Substance: SELEGILINE
     Indication: TREMOR
  3. EMSAM [Suspect]
     Active Substance: SELEGILINE
     Dosage: 6 MG,QD
     Route: 062
     Dates: start: 20140313

REACTIONS (1)
  - Skin exfoliation [Not Recovered/Not Resolved]

NARRATIVE: CASE EVENT DATE: 20140315
